FAERS Safety Report 13705756 (Version 3)
Quarter: 2017Q4

REPORT INFORMATION
  Report Type: Report from Study
  Country: None (occurrence: US)
  Receive Date: 20170630
  Receipt Date: 20171026
  Transmission Date: 20180320
  Serious: Yes (Other)
  Sender: FDA-Public Use
  Company Number: US-ABBVIE-17K-163-2024195-00

PATIENT
  Age: 55 Year
  Sex: Male
  Weight: 108.96 kg

DRUGS (3)
  1. HUMIRA [Suspect]
     Active Substance: ADALIMUMAB
     Route: 058
     Dates: start: 20170616
  2. HUMIRA [Suspect]
     Active Substance: ADALIMUMAB
     Indication: PSORIATIC ARTHROPATHY
     Route: 058
     Dates: start: 201507, end: 201705
  3. METHOTREXATE. [Concomitant]
     Active Substance: METHOTREXATE
     Indication: PSORIASIS

REACTIONS (6)
  - Dental paraesthesia [Recovered/Resolved]
  - Post procedural infection [Recovered/Resolved]
  - Tooth disorder [Not Recovered/Not Resolved]
  - Jaw cyst [Recovered/Resolved]
  - Post procedural complication [Recovered/Resolved]
  - Hypoaesthesia teeth [Recovered/Resolved]

NARRATIVE: CASE EVENT DATE: 201703
